FAERS Safety Report 25367564 (Version 1)
Quarter: 2025Q2

REPORT INFORMATION
  Report Type: Spontaneous
  Country: US (occurrence: US)
  Receive Date: 20250528
  Receipt Date: 20250528
  Transmission Date: 20250717
  Serious: Yes (Other)
  Sender: AUROBINDO
  Company Number: US-AUROBINDO-AUR-APL-2025-026407

PATIENT
  Age: 1 Week
  Sex: Female

DRUGS (6)
  1. ESMOLOL [Suspect]
     Active Substance: ESMOLOL HYDROCHLORIDE
     Indication: Atrial tachycardia
     Route: 065
  2. SOTALOL HYDROCHLORIDE [Suspect]
     Active Substance: SOTALOL HYDROCHLORIDE
     Indication: Atrial tachycardia
     Route: 065
  3. IVABRADINE [Suspect]
     Active Substance: IVABRADINE
     Indication: Atrial tachycardia
     Route: 065
  4. PROPRANOLOL [Suspect]
     Active Substance: PROPRANOLOL HYDROCHLORIDE
     Indication: Atrial tachycardia
     Route: 065
  5. DIGOXIN [Suspect]
     Active Substance: DIGOXIN
     Indication: Atrial tachycardia
     Route: 065
  6. AMIODARONE HYDROCHLORIDE [Concomitant]
     Active Substance: AMIODARONE HYDROCHLORIDE
     Indication: Atrial tachycardia
     Route: 048

REACTIONS (1)
  - Drug ineffective [Unknown]
